FAERS Safety Report 6212295-2 (Version None)
Quarter: 2009Q2

REPORT INFORMATION
  Report Type: 
  Country: None (occurrence: None)
  Receive Date: 20090529
  Receipt Date: 20090513
  Transmission Date: 20091009
  Serious: Yes (Hospitalization)
  Sender: FDA-Public Use
  Company Number: 000870

PATIENT
  Sex: Female

DRUGS (10)
  1. VIMPAT [Suspect]
     Dosage: (ORAL) ; (ORAL) ; (ORAL) ; (400 MG ORAL)
     Route: 048
     Dates: start: 20081113, end: 20081116
  2. VIMPAT [Suspect]
     Dosage: (ORAL) ; (ORAL) ; (ORAL) ; (400 MG ORAL)
     Route: 048
     Dates: start: 20081117, end: 20081123
  3. VIMPAT [Suspect]
     Dosage: (ORAL) ; (ORAL) ; (ORAL) ; (400 MG ORAL)
     Route: 048
     Dates: start: 20081124, end: 20081127
  4. VIMPAT [Suspect]
     Dosage: (ORAL) ; (ORAL) ; (ORAL) ; (400 MG ORAL)
     Route: 048
     Dates: start: 20081128
  5. TOPIRAMATE [Concomitant]
  6. LAMOTRIGIN [Concomitant]
  7. VALPROATE SODIUM [Concomitant]
  8. OLANZAPINE [Concomitant]
  9. PANTOPRAZOLE SODIUM [Concomitant]
  10. ARIPIPRAZOLE [Concomitant]

REACTIONS (1)
  - DRUG INTERACTION [None]
